FAERS Safety Report 7547211-4 (Version None)
Quarter: 2011Q2

REPORT INFORMATION
  Report Type: 
  Country: None (occurrence: None)
  Receive Date: 20110614
  Receipt Date: 20110608
  Transmission Date: 20111010
  Serious: Yes (Other)
  Sender: FDA-Public Use
  Company Number: JP-B.I. PHARMACEUTICALS,INC./RIDGEFIELD-2011-BP-14299NB

PATIENT
  Sex: Male
  Weight: 62 kg

DRUGS (10)
  1. PREDNISOLONE [Concomitant]
     Indication: SPINAL OSTEOARTHRITIS
     Dosage: 35 MG
     Route: 048
     Dates: start: 20110422
  2. LIVALO [Concomitant]
     Indication: AORTIC DISSECTION
     Dosage: 2 MG
     Route: 048
     Dates: start: 20020101
  3. TAKEPRON/LANSOPRAZOLE [Concomitant]
     Indication: REFLUX OESOPHAGITIS
     Dosage: 15 MG
     Route: 048
  4. ASPIRIN [Concomitant]
     Indication: AORTIC DISSECTION
     Dosage: 100 MG
     Route: 048
     Dates: start: 20020101
  5. MAGNESIUM OXIDE/MAGNESIUM OXIDE [Concomitant]
     Indication: CONSTIPATION
     Dosage: 1 G
     Route: 048
  6. PREDNISOLONE [Concomitant]
  7. TELMISARTAN AND HYDROCHLOROTHIAZIDE [Suspect]
     Indication: HYPERTENSION
     Route: 048
     Dates: start: 20110409, end: 20110518
  8. TELMISARTAN AND HYDROCHLOROTHIAZIDE [Suspect]
     Indication: AORTIC DISSECTION
  9. PLAVIX [Concomitant]
     Indication: INSOMNIA
     Dosage: 75 MG
     Route: 048
     Dates: start: 20020101
  10. CIPROFLOXACIN DU/CIPROFLOXACIN [Concomitant]
     Indication: CELLULITIS
     Dosage: 600 MG
     Route: 042
     Dates: start: 20110518, end: 20110522

REACTIONS (1)
  - DEHYDRATION [None]
